FAERS Safety Report 6938794-3 (Version None)
Quarter: 2010Q3

REPORT INFORMATION
  Report Type: 
  Country: None (occurrence: None)
  Receive Date: 20100824
  Receipt Date: 20100816
  Transmission Date: 20110219
  Serious: Yes (Death, Other)
  Sender: FDA-Public Use
  Company Number: US-ROCHE-721024

PATIENT
  Age: 57 Year
  Sex: Male

DRUGS (7)
  1. MYCOPHENOLATE MOFETIL [Suspect]
     Indication: IMMUNOSUPPRESSION
     Route: 065
  2. GANCICLOVIR [Suspect]
     Dosage: DRUG: GANCYCLOVIR
     Route: 065
  3. RITUXIMAB [Suspect]
     Route: 065
  4. PREDNISONE [Suspect]
     Indication: IMMUNOSUPPRESSION
     Route: 065
  5. TACROLIMUS [Suspect]
     Indication: IMMUNOSUPPRESSION
     Route: 065
  6. ORTHOCLONE OKT3 [Suspect]
     Route: 065
  7. ORTHOCLONE OKT3 [Suspect]
     Dosage: BRIEF COURSE
     Route: 065

REACTIONS (4)
  - EPSTEIN-BARR VIRUS ASSOCIATED LYMPHOPROLIFERATIVE DISORDER [None]
  - PANCREAS TRANSPLANT REJECTION [None]
  - RENAL FAILURE [None]
  - RESPIRATORY FAILURE [None]
